FAERS Safety Report 8187468-2 (Version None)
Quarter: 2012Q1

REPORT INFORMATION
  Report Type: 
  Country: None (occurrence: None)
  Receive Date: 20120306
  Receipt Date: 20120229
  Transmission Date: 20120608
  Serious: Yes (Other)
  Sender: FDA-Public Use
  Company Number: US-ROCHE-1020248

PATIENT
  Sex: Female
  Weight: 57.658 kg

DRUGS (2)
  1. ACCUTANE [Suspect]
     Indication: ACNE
     Dates: start: 20050301
  2. ACCUTANE [Suspect]
     Dates: start: 20050401, end: 20050901

REACTIONS (6)
  - IRRITABLE BOWEL SYNDROME [None]
  - LIP DRY [None]
  - BLOOD TRIGLYCERIDES INCREASED [None]
  - COLITIS ULCERATIVE [None]
  - XEROSIS [None]
  - BACK PAIN [None]
